FAERS Safety Report 19745058 (Version 1)
Quarter: 2021Q3

REPORT INFORMATION
  Report Type: Spontaneous
  Country: CZ (occurrence: CZ)
  Receive Date: 20210825
  Receipt Date: 20210825
  Transmission Date: 20211014
  Serious: Yes (Hospitalization, Other)
  Sender: FDA-Public Use
  Company Number: CZ-MICRO LABS LIMITED-ML2021-02105

PATIENT
  Age: 59 Year
  Sex: Male

DRUGS (8)
  1. AMOXICILLIN/CLAVULANIC ACID [AMOXICLAV] [Suspect]
     Active Substance: AMOXICILLIN\CLAVULANATE POTASSIUM
     Indication: PYREXIA
  2. CEFUROXIME. [Suspect]
     Active Substance: CEFUROXIME
  3. CISPLATIN. [Concomitant]
     Active Substance: CISPLATIN
  4. PREDNISONE. [Concomitant]
     Active Substance: PREDNISONE
  5. PACLITAXEL. [Concomitant]
     Active Substance: PACLITAXEL
  6. PARACETAMOL [Concomitant]
     Active Substance: ACETAMINOPHEN
  7. CLARITHROMYCIN. [Suspect]
     Active Substance: CLARITHROMYCIN
  8. PEMBROLIZUMAB. [Concomitant]
     Active Substance: PEMBROLIZUMAB

REACTIONS (3)
  - Dysarthria [Recovering/Resolving]
  - Clostridium difficile infection [Recovering/Resolving]
  - Vertigo [Recovering/Resolving]
